FAERS Safety Report 21481591 (Version 1)
Quarter: 2022Q4

REPORT INFORMATION
  Report Type: Spontaneous
  Country: US (occurrence: US)
  Receive Date: 20221020
  Receipt Date: 20221020
  Transmission Date: 20230113
  Serious: No
  Sender: FDA-Public Use
  Company Number: US-BoehringerIngelheim-2022-BI-197346

PATIENT

DRUGS (1)
  1. MELOXICAM [Suspect]
     Active Substance: MELOXICAM
     Indication: Pain

REACTIONS (1)
  - Drug ineffective [Unknown]
